FAERS Safety Report 9780144 (Version 1)
Quarter: 2013Q4

REPORT INFORMATION
  Report Type: Spontaneous
  Country: GB (occurrence: GB)
  Receive Date: 20131223
  Receipt Date: 20131223
  Transmission Date: 20140711
  Serious: Yes (Disabling)
  Sender: FDA-Public Use
  Company Number: GB-TEVA-452828USA

PATIENT
  Age: 69 Year
  Sex: Male

DRUGS (10)
  1. LEVACT [Suspect]
     Indication: LYMPHOMA
     Dosage: UNKNOWN/D
     Route: 042
     Dates: start: 20131122, end: 20131122
  2. ACICLOVIR [Concomitant]
     Indication: INFECTION PROPHYLAXIS
     Dosage: 600 MILLIGRAM DAILY;
     Route: 048
     Dates: start: 20131120
  3. ALLOPURINOL [Concomitant]
     Dosage: 300 MILLIGRAM DAILY;
     Route: 048
     Dates: start: 20131121, end: 20131201
  4. CHLORPHENAMINE [Concomitant]
     Indication: RASH
     Route: 048
     Dates: start: 20131122
  5. HYDROCORTISONE [Concomitant]
     Route: 040
     Dates: start: 20131122, end: 20131122
  6. RITUXIMAB [Concomitant]
     Indication: LYMPHOMA
     Route: 041
     Dates: start: 20131122
  7. ONDANSETRON [Concomitant]
     Indication: NAUSEA
     Route: 048
  8. PARACETAMOL [Concomitant]
     Indication: PAIN
     Route: 048
     Dates: start: 20131122
  9. RITUXIMAB [Concomitant]
     Indication: LYMPHOMA
  10. BENDAMUSTINE [Concomitant]
     Indication: LYMPHOMA

REACTIONS (7)
  - Muscular weakness [Recovered/Resolved]
  - Myopathy [Recovered/Resolved]
  - Red blood cell sedimentation rate increased [Recovered/Resolved]
  - Myalgia [Recovered/Resolved]
  - Pain in extremity [Recovered/Resolved]
  - Musculoskeletal pain [Recovered/Resolved]
  - Pyrexia [Recovered/Resolved]
